FAERS Safety Report 10956764 (Version 1)
Quarter: 2015Q1

REPORT INFORMATION
  Report Type: Spontaneous
  Country: US (occurrence: US)
  Receive Date: 20150326
  Receipt Date: 20150326
  Transmission Date: 20150721
  Serious: No
  Sender: FDA-Public Use
  Company Number: US-MYLANLABS-2014M1001801

PATIENT
  Sex: Female
  Weight: 61.22 kg

DRUGS (11)
  1. EMSAM [Suspect]
     Active Substance: SELEGILINE
     Indication: ANXIETY
  2. EMSAM [Suspect]
     Active Substance: SELEGILINE
     Dosage: 6 MG, QD, CHANGES QD
     Route: 062
     Dates: start: 2014
  3. EMSAM [Suspect]
     Active Substance: SELEGILINE
     Dosage: 12 MG, QD, CHANGES QD
     Route: 062
     Dates: start: 201407, end: 2014
  4. SENSIPAR [Concomitant]
     Active Substance: CINACALCET HYDROCHLORIDE
     Indication: PARATHYROID DISORDER
     Dosage: UNK
  5. EMSAM [Suspect]
     Active Substance: SELEGILINE
     Indication: DEPRESSION
  6. VITAMIN D                          /00107901/ [Concomitant]
     Active Substance: ERGOCALCIFEROL
     Dosage: UNK
  7. XANAX [Concomitant]
     Active Substance: ALPRAZOLAM
     Dosage: UNK, PRN
  8. EMSAM [Suspect]
     Active Substance: SELEGILINE
     Indication: ANXIETY
  9. EMSAM [Suspect]
     Active Substance: SELEGILINE
     Indication: DEPRESSION
  10. SODIUM [Concomitant]
     Active Substance: SODIUM
     Indication: BLOOD PRESSURE
     Dosage: UNK, HS
  11. EMSAM [Suspect]
     Active Substance: SELEGILINE
     Indication: OFF LABEL USE

REACTIONS (1)
  - Hypotension [Not Recovered/Not Resolved]

NARRATIVE: CASE EVENT DATE: 2014
